FAERS Safety Report 4570248-4 (Version None)
Quarter: 2005Q1

REPORT INFORMATION
  Report Type: 
  Country: None (occurrence: None)
  Receive Date: 20050202
  Receipt Date: 20050120
  Transmission Date: 20050727
  Serious: Yes (Death)
  Sender: FDA-Public Use
  Company Number: 2005018227

PATIENT
  Sex: Male

DRUGS (1)
  1. CELEBRA (CELECOXIB) [Suspect]
     Indication: LIMB INJURY
     Dosage: 200 MG (1 IN 1 D), ORAL
     Route: 048
     Dates: start: 20041223, end: 20041226

REACTIONS (2)
  - DEHYDRATION [None]
  - RENAL FAILURE ACUTE [None]
